FAERS Safety Report 6260808-7 (Version None)
Quarter: 2009Q3

REPORT INFORMATION
  Report Type: 
  Country: None (occurrence: None)
  Receive Date: 20090708
  Receipt Date: 20090626
  Transmission Date: 20100115
  Serious: Yes (Other)
  Sender: FDA-Public Use
  Company Number: US-JNJCH-2009017979

PATIENT
  Age: 66 Year
  Sex: Female
  Weight: 99.8 kg

DRUGS (4)
  1. DESITIN DIAPER RASH [Suspect]
     Indication: HEAT RASH
     Dosage: TEXT:ENOUGH TO SPREAD OVER THE AREA ONCE
     Route: 061
     Dates: start: 20090622, end: 20090622
  2. ALBUTEROL [Concomitant]
     Indication: ASTHMA
     Dosage: TEXT:UNSPECIFIED AS NEEDED
     Route: 055
  3. ADVAIR HFA [Concomitant]
     Indication: ASTHMA
     Dosage: TEXT:UNSPECIFIED TWICE DAILY
     Route: 055
  4. THEOPHYLLINE [Concomitant]
     Indication: ASTHMA
     Dosage: TEXT:1 TABLET DAILY
     Route: 065

REACTIONS (3)
  - ASTHMA [None]
  - OFF LABEL USE [None]
  - THERAPEUTIC RESPONSE UNEXPECTED [None]
